FAERS Safety Report 5089132-5 (Version None)
Quarter: 2006Q3

REPORT INFORMATION
  Report Type: 
  Country: None (occurrence: None)
  Receive Date: 20060822
  Receipt Date: 20060803
  Transmission Date: 20061208
  Serious: Yes (Other)
  Sender: FDA-Public Use
  Company Number: DE200608001318

PATIENT
  Sex: Male

DRUGS (5)
  1. CYMBALTA [Suspect]
     Indication: DIABETIC NEUROPATHY
     Dosage: 30 MG, DAILY (1/D), ORAL
     Route: 048
     Dates: start: 20060607, end: 20060623
  2. GABAPENTIN [Concomitant]
  3. ROSIGLITAZONE [Concomitant]
  4. CRANOC (FLUVASTATIN SODIUM) [Concomitant]
  5. NORTRILEN (NORTRIPTYLINE HYDROCHLORIDE) [Concomitant]

REACTIONS (4)
  - AGGRESSION [None]
  - CONFUSIONAL STATE [None]
  - DELIRIUM [None]
  - PERSONALITY CHANGE [None]
